FAERS Safety Report 8185928-1 (Version None)
Quarter: 2012Q1

REPORT INFORMATION
  Report Type: 
  Country: None (occurrence: None)
  Receive Date: 20120305
  Receipt Date: 20120228
  Transmission Date: 20120608
  Serious: Yes (Life-Threatening, Hospitalization)
  Sender: FDA-Public Use
  Company Number: US-ASTRAZENECA-2012SE01913

PATIENT
  Age: 74 Year
  Sex: Female
  Weight: 77.1 kg

DRUGS (5)
  1. NEXIUM [Suspect]
     Indication: GASTROOESOPHAGEAL REFLUX DISEASE
     Route: 048
     Dates: start: 19920101
  2. CHOLESTEROL PILL [Concomitant]
  3. BLOOD PRESSURE PILL [Concomitant]
  4. THYROID GLAND PILL [Concomitant]
  5. DETROL [Concomitant]
     Indication: HYPERTONIC BLADDER

REACTIONS (5)
  - INAPPROPRIATE SCHEDULE OF DRUG ADMINISTRATION [None]
  - GASTROOESOPHAGEAL REFLUX DISEASE [None]
  - MALAISE [None]
  - MEDICATION ERROR [None]
  - DRUG DOSE OMISSION [None]
